FAERS Safety Report 20063261 (Version 3)
Quarter: 2022Q1

REPORT INFORMATION
  Report Type: Report from Study
  Country: US (occurrence: None)
  Receive Date: 20211112
  Receipt Date: 20220120
  Transmission Date: 20220423
  Serious: Yes (Other)
  Sender: FDA-Public Use
  Company Number: US-ROCHE-2950205

PATIENT
  Age: 52 Year
  Sex: Male
  Weight: 107 kg

DRUGS (4)
  1. ATEZOLIZUMAB [Suspect]
     Active Substance: ATEZOLIZUMAB
     Indication: Adenocarcinoma of colon
     Dosage: ON 14/JUN/2021 LAST DOSE ADMINISTERED
     Route: 041
     Dates: start: 20201221
  2. FLUOROURACIL [Suspect]
     Active Substance: FLUOROURACIL
     Indication: Adenocarcinoma of colon
     Dosage: FOLLOWED BY 2400MG/M2 IV OVER 46 HOURS DAYS 1-3?LAST ADMINISTERED: 02/JUN/2021
     Route: 040
     Dates: start: 20201221
  3. OXALIPLATIN [Suspect]
     Active Substance: OXALIPLATIN
     Indication: Adenocarcinoma of colon
     Dosage: LAST ADMINISTERED: 02/JUN/2021
     Route: 042
     Dates: start: 20201221
  4. LEUCOVORIN CALCIUM [Suspect]
     Active Substance: LEUCOVORIN CALCIUM
     Indication: Adenocarcinoma of colon
     Dosage: LAST ADMINISTERED: 02/JUN/2021
     Route: 042
     Dates: start: 20201221

REACTIONS (1)
  - Embolism [Recovering/Resolving]

NARRATIVE: CASE EVENT DATE: 20210615
